FAERS Safety Report 4345135-7 (Version None)
Quarter: 2004Q2

REPORT INFORMATION
  Report Type: 
  Country: None (occurrence: None)
  Receive Date: 20040423
  Receipt Date: 20030213
  Transmission Date: 20050107
  Serious: Yes (Death, Life-Threatening, Hospitalization, Other)
  Sender: FDA-Public Use
  Company Number: US-MERCK-0302USA01474

PATIENT
  Age: 76 Year
  Sex: Male

DRUGS (3)
  1. [THERAPY UNSPECIFIED] [Concomitant]
     Route: 065
  2. FOSAMAX [Suspect]
     Indication: OSTEOPOROSIS
     Route: 048
     Dates: start: 20020706, end: 20020706
  3. MIACALCIN [Concomitant]
     Route: 065

REACTIONS (12)
  - ADRENAL CORTEX NECROSIS [None]
  - ADRENAL HAEMORRHAGE [None]
  - ATRIAL FIBRILLATION [None]
  - CANDIDIASIS [None]
  - ERYTHEMA MULTIFORME [None]
  - PNEUMONITIS [None]
  - PULMONARY EOSINOPHILIA [None]
  - PULMONARY OEDEMA [None]
  - RENAL FAILURE ACUTE [None]
  - RENAL TUBULAR NECROSIS [None]
  - SEPSIS [None]
  - SPLENITIS [None]
